FAERS Safety Report 9736287 (Version 1)
Quarter: 2013Q4

REPORT INFORMATION
  Report Type: Report from Study
  Country: US (occurrence: US)
  Receive Date: 20131206
  Receipt Date: 20131206
  Transmission Date: 20140711
  Serious: Yes (Hospitalization)
  Sender: FDA-Public Use
  Company Number: US-ROCHE-1308157

PATIENT
  Sex: Female

DRUGS (12)
  1. PEGASYS [Suspect]
     Indication: HEPATITIS C
     Route: 065
  2. CLONAZEPAM [Concomitant]
     Route: 048
  3. BUPROPION HCL [Concomitant]
     Route: 065
  4. GABAPENTIN [Concomitant]
     Indication: PAIN
     Dosage: TAKE 3 BY MOUTH DAILY AT 21.00
     Route: 065
  5. ZOLPIDEM [Concomitant]
     Dosage: BED TIME
     Route: 065
  6. LEVOTHYROXINE [Concomitant]
     Dosage: ONE A DAY
     Route: 065
  7. ASPIRIN [Concomitant]
     Route: 065
  8. CITALOPRAM [Concomitant]
     Route: 065
  9. OMEPRAZOLE [Concomitant]
     Route: 065
  10. LISINOPRIL/HCTZ [Concomitant]
     Dosage: 20/12.5 MG
     Route: 065
  11. SIMVASTATIN [Concomitant]
     Route: 065
  12. INSULIN HUMALOG [Concomitant]

REACTIONS (7)
  - Blood pressure decreased [Unknown]
  - Coma [Unknown]
  - Convulsion [Unknown]
  - Vomiting [Unknown]
  - Dizziness [Unknown]
  - Tremor [Unknown]
  - Dyspnoea [Unknown]
